FAERS Safety Report 7964705-8 (Version None)
Quarter: 2011Q4

REPORT INFORMATION
  Report Type: 
  Country: None (occurrence: None)
  Receive Date: 20111208
  Receipt Date: 20111124
  Transmission Date: 20120403
  Serious: Yes (Death, Other)
  Sender: FDA-Public Use
  Company Number: JP-PFIZER INC-2011287281

PATIENT
  Age: 71 Year
  Sex: Male

DRUGS (3)
  1. AZULFIDINE [Suspect]
     Indication: RHEUMATOID ARTHRITIS
     Dosage: 1000 MG/DAY
     Route: 048
     Dates: start: 20100101, end: 20100701
  2. METHOTREXATE [Suspect]
     Indication: RHEUMATOID ARTHRITIS
     Dosage: 6 MG, WEEKLY
     Route: 048
     Dates: start: 20100101, end: 20100701
  3. PREDNISOLONE [Suspect]
     Indication: RHEUMATOID ARTHRITIS
     Dosage: 7.5 MG/DAY
     Route: 048
     Dates: start: 19910101, end: 20100701

REACTIONS (5)
  - PNEUMOTHORAX [None]
  - LUNG ABSCESS [None]
  - IMMUNOSUPPRESSION [None]
  - PSEUDOMONAS INFECTION [None]
  - PNEUMONIA [None]
